FAERS Safety Report 14066915 (Version 1)
Quarter: 2017Q4

REPORT INFORMATION
  Report Type: Spontaneous
  Country: US (occurrence: US)
  Receive Date: 20171010
  Receipt Date: 20171010
  Transmission Date: 20180321
  Serious: Yes (Other)
  Sender: FDA-Public Use
  Company Number: US-ALVOGEN-2017-ALVOGEN-093704

PATIENT
  Sex: Female

DRUGS (14)
  1. LISINOPRIL. [Suspect]
     Active Substance: LISINOPRIL
     Indication: HYPERTENSION
     Route: 048
     Dates: start: 1999
  2. POTASSIUM [Concomitant]
     Active Substance: POTASSIUM
     Indication: PRODUCT USED FOR UNKNOWN INDICATION
     Route: 048
     Dates: start: 1999
  3. FUROSEMIDE. [Concomitant]
     Active Substance: FUROSEMIDE
     Indication: DIURETIC THERAPY
     Route: 048
     Dates: start: 1999
  4. METOPROLOL. [Suspect]
     Active Substance: METOPROLOL
     Indication: HYPERTENSION
     Dates: start: 1999
  5. LEVOTHYROXINE. [Concomitant]
     Active Substance: LEVOTHYROXINE
     Indication: THYROID DISORDER
     Route: 048
     Dates: start: 1999
  6. CELECOXIB. [Concomitant]
     Active Substance: CELECOXIB
     Indication: ARTHRITIS
     Route: 048
     Dates: start: 1999
  7. TRAMADOL. [Concomitant]
     Active Substance: TRAMADOL
     Indication: PRODUCT USED FOR UNKNOWN INDICATION
     Route: 048
     Dates: start: 1999
  8. ALLOPURINOL. [Concomitant]
     Active Substance: ALLOPURINOL
     Indication: GOUT
     Route: 048
     Dates: start: 1999
  9. BABY ASPIRIN [Concomitant]
     Active Substance: ASPIRIN
     Indication: ANTICOAGULANT THERAPY
     Route: 048
     Dates: start: 1999
  10. FISH OIL [Concomitant]
     Active Substance: FISH OIL
     Indication: BONE DISORDER
     Route: 048
     Dates: start: 1999
  11. BYDUREON [Suspect]
     Active Substance: EXENATIDE
     Indication: TYPE 2 DIABETES MELLITUS
     Dosage: PEN
     Route: 058
     Dates: start: 2016
  12. CRESTOR [Suspect]
     Active Substance: ROSUVASTATIN CALCIUM
     Indication: BLOOD CHOLESTEROL INCREASED
     Route: 048
     Dates: start: 1999
  13. VITAMIN D3 [Concomitant]
     Active Substance: CHOLECALCIFEROL
     Indication: PRODUCT USED FOR UNKNOWN INDICATION
     Route: 048
     Dates: start: 1999
  14. ESCITALOPRAM [Concomitant]
     Active Substance: ESCITALOPRAM OXALATE
     Indication: DEPRESSION
     Route: 048
     Dates: start: 1999

REACTIONS (1)
  - Glaucoma [Unknown]
